FAERS Safety Report 18310554 (Version 1)
Quarter: 2020Q3

REPORT INFORMATION
  Report Type: Spontaneous
  Country: FR (occurrence: FR)
  Receive Date: 20200925
  Receipt Date: 20200925
  Transmission Date: 20201103
  Serious: Yes (Other)
  Sender: FDA-Public Use
  Company Number: ALC2020FR007562

PATIENT

DRUGS (1)
  1. BETADINE [Suspect]
     Active Substance: POVIDONE-IODINE
     Indication: ACCIDENTAL EXPOSURE TO PRODUCT
     Dosage: 3 GORG?ES
     Route: 048
     Dates: start: 20200608, end: 20200608

REACTIONS (5)
  - Asthenia [Unknown]
  - Accidental exposure to product [Recovered/Resolved]
  - Nausea [Unknown]
  - Abdominal pain [Unknown]
  - Vomiting [Unknown]

NARRATIVE: CASE EVENT DATE: 20200608
